FAERS Safety Report 7540835-X (Version None)
Quarter: 2011Q2

REPORT INFORMATION
  Report Type: 
  Country: None (occurrence: None)
  Receive Date: 20110610
  Receipt Date: 20110606
  Transmission Date: 20111010
  Serious: Yes (Other)
  Sender: FDA-Public Use
  Company Number: ES-ROCHE-781206

PATIENT
  Age: 64 Year
  Sex: Male

DRUGS (3)
  1. AVASTIN [Suspect]
     Indication: COLORECTAL CANCER METASTATIC
     Dosage: CYCLIC, 25 MG.ML. 1 VIAL 100MG/4 ML
     Route: 042
     Dates: start: 20081027
  2. IRINOTECAN HYDROCHLORIDE [Suspect]
     Indication: COLORECTAL CANCER METASTATIC
     Dosage: CYCLIC, 20 MG/ML
     Route: 042
     Dates: start: 20081027
  3. FLUOROURACIL [Suspect]
     Indication: COLORECTAL CANCER METASTATIC
     Dosage: 50MG/ML, CYCLIC
     Route: 042
     Dates: start: 20100714

REACTIONS (1)
  - HYPERTRIGLYCERIDAEMIA [None]
